FAERS Safety Report 4752172-7 (Version None)
Quarter: 2005Q3

REPORT INFORMATION
  Report Type: 
  Country: None (occurrence: None)
  Receive Date: 20050825
  Receipt Date: 20050811
  Transmission Date: 20060218
  Serious: Yes (Other)
  Sender: FDA-Public Use
  Company Number: FR-JNJFOC-20050700423

PATIENT
  Sex: Male
  Weight: 96 kg

DRUGS (4)
  1. REMINYL [Suspect]
     Indication: DEMENTIA ALZHEIMER'S TYPE
     Route: 048
  2. EBIXA [Suspect]
     Indication: DEMENTIA ALZHEIMER'S TYPE
     Route: 048
  3. ALDACTAZINE [Suspect]
     Route: 048
  4. ALDACTAZINE [Suspect]
     Dosage: 25 MG SPIRONOLACTONE + 10 MG ALTIZIDE
     Route: 048

REACTIONS (2)
  - OEDEMA PERIPHERAL [None]
  - RENAL FAILURE [None]
